FAERS Safety Report 5838945-8 (Version None)
Quarter: 2008Q3

REPORT INFORMATION
  Report Type: 
  Country: None (occurrence: None)
  Receive Date: 20080808
  Receipt Date: 20080805
  Transmission Date: 20090109
  Serious: Yes (Other)
  Sender: FDA-Public Use
  Company Number: PHEH2008US06867

PATIENT
  Sex: Female

DRUGS (1)
  1. COMBIPATCH [Suspect]
     Indication: MENOPAUSE
     Dosage: UNK
     Dates: start: 20070101

REACTIONS (2)
  - ABDOMINAL PAIN [None]
  - APPENDICECTOMY [None]
